FAERS Safety Report 4749545-5 (Version None)
Quarter: 2005Q3

REPORT INFORMATION
  Report Type: 
  Country: None (occurrence: None)
  Receive Date: 20050822
  Receipt Date: 20050811
  Transmission Date: 20060218
  Serious: Yes (Hospitalization)
  Sender: FDA-Public Use
  Company Number: US-JNJFOC-20050803471

PATIENT
  Age: 51 Year
  Sex: Male
  Weight: 71.22 kg

DRUGS (3)
  1. DURAGESIC-100 [Suspect]
     Dosage: ONE 100 UG/HR PATCH PLUS ONE 75 UG/HR PATCH
     Route: 062
  2. KLONIPIN [Concomitant]
     Indication: ANXIETY
  3. BACLOFEN [Concomitant]

REACTIONS (16)
  - ABDOMINAL DISTENSION [None]
  - ASTHENIA [None]
  - BLOOD PRESSURE INCREASED [None]
  - CONFUSIONAL STATE [None]
  - DIARRHOEA [None]
  - DIZZINESS [None]
  - FEELING ABNORMAL [None]
  - HEADACHE [None]
  - HYPERHIDROSIS [None]
  - HYPERSOMNIA [None]
  - MEMORY IMPAIRMENT [None]
  - MENTAL IMPAIRMENT [None]
  - MUSCLE SPASMS [None]
  - PAIN [None]
  - SCREAMING [None]
  - VISUAL DISTURBANCE [None]
